FAERS Safety Report 14248395 (Version 1)
Quarter: 2017Q4

REPORT INFORMATION
  Report Type: Spontaneous
  Country: NL (occurrence: NL)
  Receive Date: 20171202
  Receipt Date: 20171202
  Transmission Date: 20180321
  Serious: Yes (Life-Threatening, Disabling)
  Sender: FDA-Public Use
  Company Number: None

PATIENT
  Age: 26 Year
  Sex: Female

DRUGS (1)
  1. HYDROCORTISONE. [Suspect]
     Active Substance: HYDROCORTISONE
     Indication: ECZEMA
     Dates: start: 20140908, end: 20150123

REACTIONS (8)
  - Pruritus [None]
  - Erythema [None]
  - Memory impairment [None]
  - Secretion discharge [None]
  - Skin burning sensation [None]
  - Multiple allergies [None]
  - Drug dependence [None]
  - Speech disorder [None]

NARRATIVE: CASE EVENT DATE: 20141001
